FAERS Safety Report 15133432 (Version 4)
Quarter: 2019Q3

REPORT INFORMATION
  Report Type: Spontaneous
  Country: US (occurrence: US)
  Receive Date: 20180712
  Receipt Date: 20190722
  Transmission Date: 20191004
  Serious: No
  Sender: FDA-Public Use
  Company Number: US-PFIZER INC-2018280215

PATIENT
  Age: 11 Year
  Sex: Female
  Weight: 47.17 kg

DRUGS (4)
  1. GENOTROPIN [Suspect]
     Active Substance: SOMATROPIN
     Indication: THYMUS ENLARGEMENT
     Dosage: 1.6 MG, DAILY (SEVEN DAYS PER WEEK)
     Route: 058
     Dates: start: 201804
  2. GENOTROPIN [Suspect]
     Active Substance: SOMATROPIN
     Indication: HYPOPITUITARISM
     Dosage: 1.6 MG, UNK
     Dates: start: 201803
  3. GENOTROPIN [Suspect]
     Active Substance: SOMATROPIN
     Dosage: 1.8 MG, DAILY, (UNDER THE SKIN)
     Route: 058
     Dates: start: 20180401
  4. QVAR [Concomitant]
     Active Substance: BECLOMETHASONE DIPROPIONATE
     Dosage: 40 UG, UNK, (AER W/ADAP)

REACTIONS (9)
  - Poor quality device used [Unknown]
  - Anxiety [Recovering/Resolving]
  - Growing pains [Unknown]
  - Respiratory disorder [Recovered/Resolved]
  - Condition aggravated [Not Recovered/Not Resolved]
  - Anger [Not Recovered/Not Resolved]
  - Ear infection [Recovered/Resolved]
  - Respiratory tract congestion [Recovered/Resolved]
  - Arthralgia [Unknown]
